FAERS Safety Report 13503162 (Version 2)
Quarter: 2017Q2

REPORT INFORMATION
  Report Type: Spontaneous
  Country: DE (occurrence: DE)
  Receive Date: 20170502
  Receipt Date: 20170518
  Transmission Date: 20170830
  Serious: Yes (Hospitalization)
  Sender: FDA-Public Use
  Company Number: DE-AMGEN-DEUSP2017033175

PATIENT
  Age: 47 Year
  Sex: Male
  Weight: 100 kg

DRUGS (8)
  1. PLIAZON [Concomitant]
     Dosage: UNK
     Dates: start: 20170201, end: 20170222
  2. FOLINIC ACID [Concomitant]
     Active Substance: LEUCOVORIN
     Indication: COLORECTAL CANCER METASTATIC
     Dosage: UNK
  3. 5-FU [Concomitant]
     Active Substance: FLUOROURACIL
     Indication: COLORECTAL CANCER METASTATIC
     Dosage: UNK
  4. VECTIBIX [Suspect]
     Active Substance: PANITUMUMAB
     Dosage: UNK, WITH DOSE REDUCTION 80%
     Route: 065
     Dates: start: 20170418
  5. VECTIBIX [Suspect]
     Active Substance: PANITUMUMAB
     Indication: COLORECTAL CANCER METASTATIC
     Dosage: 6 MG/KG, Q2WK (EVERY 14 DAYS)
     Route: 042
     Dates: start: 20170201, end: 20170215
  6. AMOCLAV [Concomitant]
     Active Substance: AMOXICILLIN\CLAVULANATE POTASSIUM
     Dosage: UNK, BID (875/125), (1-0-1)
     Dates: start: 20170222, end: 20170304
  7. OXALIPLATIN. [Concomitant]
     Active Substance: OXALIPLATIN
     Indication: COLORECTAL CANCER METASTATIC
     Dosage: UNK
  8. MINOCYCLINE [Concomitant]
     Active Substance: MINOCYCLINE\MINOCYCLINE HYDROCHLORIDE
     Dosage: 50 MG, BID (1-0-1)
     Dates: start: 20170201, end: 20170222

REACTIONS (5)
  - Rash [Recovered/Resolved]
  - Pain [Unknown]
  - General physical health deterioration [Unknown]
  - Skin toxicity [Recovered/Resolved]
  - Pruritus [Recovered/Resolved]

NARRATIVE: CASE EVENT DATE: 20170208
